FAERS Safety Report 5414212-1 (Version None)
Quarter: 2007Q3

REPORT INFORMATION
  Report Type: 
  Country: None (occurrence: None)
  Receive Date: 20070814
  Receipt Date: 20070802
  Transmission Date: 20080115
  Serious: Yes (Other)
  Sender: FDA-Public Use
  Company Number: JP-PFIZER INC-2007064707

PATIENT
  Age: 53 Year
  Sex: Male

DRUGS (5)
  1. ZOLOFT [Suspect]
     Dosage: DAILY DOSE:75MG
     Route: 048
  2. SILECE [Concomitant]
  3. LENDORMIN [Concomitant]
  4. TETRAMIDE [Concomitant]
  5. LEXOTAN [Concomitant]

REACTIONS (1)
  - MASTITIS [None]
